FAERS Safety Report 19309404 (Version 1)
Quarter: 2021Q2

REPORT INFORMATION
  Report Type: Spontaneous
  Country: US (occurrence: US)
  Receive Date: 20210526
  Receipt Date: 20210526
  Transmission Date: 20210717
  Serious: Yes (Disabling)
  Sender: FDA-Public Use
  Company Number: None

PATIENT
  Age: 72 Year
  Sex: Female
  Weight: 46.35 kg

DRUGS (5)
  1. ALENDRONATE [Suspect]
     Active Substance: ALENDRONATE SODIUM
     Indication: OSTEOPOROSIS
     Route: 048
     Dates: start: 20171101, end: 20210501
  2. MULTIVITAMIN [Concomitant]
     Active Substance: VITAMINS
  3. ESTRADIOL. [Concomitant]
     Active Substance: ESTRADIOL
  4. CLARITIN [Concomitant]
     Active Substance: LORATADINE
  5. BENADRYL [Concomitant]
     Active Substance: DIPHENHYDRAMINE HYDROCHLORIDE

REACTIONS (2)
  - Tooth disorder [None]
  - Osteonecrosis of jaw [None]

NARRATIVE: CASE EVENT DATE: 20210308
